FAERS Safety Report 7503877-6 (Version None)
Quarter: 2011Q2

REPORT INFORMATION
  Report Type: 
  Country: None (occurrence: None)
  Receive Date: 20110525
  Receipt Date: 20110518
  Transmission Date: 20111010
  Serious: Yes (Death)
  Sender: FDA-Public Use
  Company Number: US-GENZYME-FLUD-1001176

PATIENT

DRUGS (11)
  1. MYCOPHENOLATE MOFETIL [Concomitant]
     Indication: PROPHYLAXIS AGAINST GRAFT VERSUS HOST DISEASE
     Dosage: UNK, FIRST 50 DAYS POST TRANSPLANT
     Route: 065
  2. FLUDARA [Suspect]
     Indication: STEM CELL TRANSPLANT
     Dosage: 30 MG/M2, QD X 6 DAYS
     Route: 065
  3. THYMOGLOBULIN [Suspect]
     Indication: STEM CELL TRANSPLANT
     Dosage: 1 MG/KG, QD FOR 4 DAYS PRETRANSPLANT
     Route: 065
  4. THYMOGLOBULIN [Suspect]
     Indication: MYELODYSPLASTIC SYNDROME
  5. ACYCLOVIR [Concomitant]
     Indication: ANTIVIRAL PROPHYLAXIS
     Dosage: UNK
     Route: 065
  6. FLUDARA [Suspect]
     Indication: MYELODYSPLASTIC SYNDROME
  7. BUSULFAN [Suspect]
     Indication: STEM CELL TRANSPLANT
     Dosage: GIVEN AS SINGLE DAILY DOSES X2 WITH TARGETED ABSOLUTE NEUTROPHIL COUNT AT 4000 MCMOL X MIN PER DAY
     Route: 065
  8. CYCLOSPORINE [Concomitant]
     Indication: PROPHYLAXIS AGAINST GRAFT VERSUS HOST DISEASE
     Dosage: UNK, STARTING DAY -1 PRE-SCT
     Route: 065
  9. ACYCLOVIR [Concomitant]
  10. FLUCONAZOLE [Concomitant]
     Indication: ANTIFUNGAL PROPHYLAXIS
     Dosage: UNK
     Route: 065
  11. BUSULFAN [Suspect]
     Indication: MYELODYSPLASTIC SYNDROME

REACTIONS (1)
  - CHRONIC GRAFT VERSUS HOST DISEASE [None]
